FAERS Safety Report 15604695 (Version 1)
Quarter: 2018Q4

REPORT INFORMATION
  Report Type: Spontaneous
  Country: US (occurrence: US)
  Receive Date: 20181111
  Receipt Date: 20181111
  Transmission Date: 20190205
  Serious: Yes (Death, Hospitalization, Other)
  Sender: FDA-Public Use
  Company Number: PHHY2018US150644

PATIENT
  Age: 36 Year
  Sex: Female

DRUGS (1)
  1. DILTIAZEM. [Suspect]
     Active Substance: DILTIAZEM
     Indication: PRODUCT USED FOR UNKNOWN INDICATION
     Dosage: UNK
     Route: 065

REACTIONS (5)
  - Renal failure [Unknown]
  - Colitis ischaemic [Unknown]
  - Cardiac arrest [Fatal]
  - Toxicity to various agents [Fatal]
  - Product administration error [Unknown]
